FAERS Safety Report 5394768-8 (Version None)
Quarter: 2007Q3

REPORT INFORMATION
  Report Type: 
  Country: None (occurrence: None)
  Receive Date: 20070720
  Receipt Date: 20070716
  Transmission Date: 20080115
  Serious: Yes (Other)
  Sender: FDA-Public Use
  Company Number: 2007SP012735

PATIENT
  Age: 81 Year
  Sex: Female
  Weight: 52.6173 kg

DRUGS (5)
  1. ALBUTEROL [Suspect]
     Indication: ASTHMA
     Dosage: 5 DF; QD; PO
     Route: 048
     Dates: start: 20051001
  2. ALBUTEROL [Suspect]
     Indication: BRONCHITIS CHRONIC
     Dosage: 5 DF; QD; PO
     Route: 048
     Dates: start: 20051001
  3. ALBUTEROL [Suspect]
     Indication: ASTHMA
     Dosage: 5 DF; QD
     Dates: start: 20051001
  4. ALBUTEROL [Suspect]
     Indication: BRONCHITIS CHRONIC
     Dosage: 5 DF; QD
     Dates: start: 20051001
  5. ZITHROMAX [Concomitant]

REACTIONS (5)
  - CONTUSION [None]
  - EYE DISORDER [None]
  - GLAUCOMA [None]
  - RENAL FAILURE [None]
  - UNEVALUABLE EVENT [None]
